FAERS Safety Report 10285441 (Version 2)
Quarter: 2014Q3

REPORT INFORMATION
  Report Type: Other
  Country: IT (occurrence: IT)
  Receive Date: 20140709
  Receipt Date: 20140709
  Transmission Date: 20150326
  Serious: Yes (Hospitalization)
  Sender: FDA-Public Use
  Company Number: IT-SUN PHARMACEUTICAL INDUSTRIES LTD-2014SUN01221

PATIENT

DRUGS (3)
  1. LOSARTAN POTASSICO [Concomitant]
     Indication: PRODUCT USED FOR UNKNOWN INDICATION
  2. OLANZAPINA SUN 20 MG COMPRESSA [Suspect]
     Active Substance: OLANZAPINE
     Indication: FRONTOTEMPORAL DEMENTIA
     Dosage: 20 MG TOTAL
     Route: 048
     Dates: start: 20140314, end: 20140314
  3. EBIXA ^20 MG - COMPRESSE FILM RIVESTITE - USO ORALE - BLISTER(ALLUMINI [Concomitant]
     Indication: PRODUCT USED FOR UNKNOWN INDICATION
     Dosage: 20 MG

REACTIONS (7)
  - Malaise [Recovered/Resolved]
  - Hyperchlorhydria [Recovered/Resolved]
  - Aphasia [Recovered/Resolved]
  - Clumsiness [Recovered/Resolved]
  - Dyspepsia [Recovered/Resolved]
  - Balance disorder [Recovered/Resolved]
  - Anal sphincter atony [Recovered/Resolved]

NARRATIVE: CASE EVENT DATE: 20140314
